FAERS Safety Report 4768226-5 (Version None)
Quarter: 2005Q3

REPORT INFORMATION
  Report Type: 
  Country: None (occurrence: None)
  Receive Date: 20050912
  Receipt Date: 20050823
  Transmission Date: 20060218
  Serious: Yes (Hospitalization, Disabling, Congenital Anomaly)
  Sender: FDA-Public Use
  Company Number: 403948

PATIENT
  Sex: Female
  Weight: 2.5 kg

DRUGS (2)
  1. ACCUTANE [Suspect]
     Indication: ACNE
     Dosage: 60 MG DAILY ORAL
     Route: 048
     Dates: start: 19960530, end: 19961215
  2. PREDNISONE [Concomitant]

REACTIONS (90)
  - ABDOMINAL PAIN [None]
  - ABNORMAL LABOUR AFFECTING FOETUS [None]
  - ANOMALY OF EXTERNAL EAR CONGENITAL [None]
  - BLINDNESS [None]
  - BODY DYSMORPHIC DISORDER [None]
  - BRONCHITIS [None]
  - CEREBRAL PALSY [None]
  - CERUMEN IMPACTION [None]
  - CHOKING [None]
  - COGNITIVE DISORDER [None]
  - CONGENITAL ANOMALY [None]
  - CONGENITAL CENTRAL NERVOUS SYSTEM ANOMALY [None]
  - CONGENITAL NOSE MALFORMATION [None]
  - CONGENITAL OPTIC NERVE ANOMALY [None]
  - CONSTIPATION [None]
  - CONVULSION [None]
  - CROUP INFECTIOUS [None]
  - DECREASED APPETITE [None]
  - DELAYED FONTANELLE CLOSURE [None]
  - DERMATITIS DIAPER [None]
  - DEVELOPMENTAL COORDINATION DISORDER [None]
  - DEVELOPMENTAL DELAY [None]
  - DILATATION VENTRICULAR [None]
  - DRUG EXPOSURE DURING PREGNANCY [None]
  - EAR CANAL STENOSIS [None]
  - EATING DISORDER [None]
  - EYELID PTOSIS [None]
  - FACIAL DYSMORPHISM [None]
  - FAILURE TO THRIVE [None]
  - FEEDING DISORDER NEONATAL [None]
  - FLATULENCE [None]
  - FLUID INTAKE REDUCED [None]
  - FOETAL DISORDER [None]
  - FONTANELLE BULGING [None]
  - FOOD INTOLERANCE [None]
  - GASTROENTERITIS [None]
  - HAEMANGIOMA CONGENITAL [None]
  - HAIR GROWTH ABNORMAL [None]
  - HEAD LAG [None]
  - HYDROCEPHALUS [None]
  - HYPERACUSIS [None]
  - HYPERREFLEXIA [None]
  - HYPERSOMNIA [None]
  - HYPOKINESIA [None]
  - HYPOTONIA [None]
  - INFECTION [None]
  - INJURY [None]
  - IRRITABILITY [None]
  - JAUNDICE NEONATAL [None]
  - JOINT RANGE OF MOTION DECREASED [None]
  - LETHARGY [None]
  - LOW SET EARS [None]
  - MASTOIDITIS [None]
  - MENTAL RETARDATION SEVERITY UNSPECIFIED [None]
  - MICROCEPHALY [None]
  - MIDDLE EAR EFFUSION [None]
  - MOTOR DYSFUNCTION [None]
  - MULTIPLE CONGENITAL ABNORMALITIES [None]
  - MUSCLE DISORDER [None]
  - MUSCLE SPASTICITY [None]
  - MUSCLE TIGHTNESS [None]
  - MUSCULOSKELETAL DISORDER [None]
  - NERVOUS SYSTEM DISORDER [None]
  - OPTIC ATROPHY [None]
  - OTITIS MEDIA [None]
  - PARAESTHESIA [None]
  - PARALYSIS [None]
  - PERIPHERAL OEDEMA NEONATAL [None]
  - PERIVENTRICULAR LEUKOMALACIA [None]
  - PREMATURE BABY [None]
  - PUPILLARY LIGHT REFLEX TESTS ABNORMAL [None]
  - RASH [None]
  - RESPIRATORY DISORDER [None]
  - SCREAMING [None]
  - SHOCK [None]
  - SKULL MALFORMATION [None]
  - SOCIAL PROBLEM [None]
  - SPEECH DISORDER DEVELOPMENTAL [None]
  - STRABISMUS CONGENITAL [None]
  - SYNDACTYLY [None]
  - TEMPERATURE REGULATION DISORDER [None]
  - TYMPANIC MEMBRANE DISORDER [None]
  - UPPER RESPIRATORY TRACT INFECTION [None]
  - URINE OUTPUT DECREASED [None]
  - URTICARIA [None]
  - VIRAL INFECTION [None]
  - VISUAL ACUITY REDUCED [None]
  - VISUAL DISTURBANCE [None]
  - VOMITING [None]
  - WEIGHT GAIN POOR [None]
